FAERS Safety Report 21353279 (Version 2)
Quarter: 2022Q4

REPORT INFORMATION
  Report Type: Spontaneous
  Country: IE (occurrence: None)
  Receive Date: 20220920
  Receipt Date: 20221013
  Transmission Date: 20230113
  Serious: Yes (Other)
  Sender: FDA-Public Use
  Company Number: IE-ROCHE-3181667

PATIENT
  Age: 52 Year

DRUGS (2)
  1. PRALSETINIB [Suspect]
     Active Substance: PRALSETINIB
     Indication: Lung adenocarcinoma
     Dosage: CYCLE 1
     Route: 048
     Dates: start: 20220811
  2. PRALSETINIB [Suspect]
     Active Substance: PRALSETINIB
     Dosage: CYCLE 1
     Route: 048

REACTIONS (3)
  - Neutropenia [Recovered/Resolved]
  - Hypertension [Recovered/Resolved]
  - Sinus bradycardia [Recovered/Resolved]

NARRATIVE: CASE EVENT DATE: 20220907
